FAERS Safety Report 8287731-0 (Version None)
Quarter: 2012Q2

REPORT INFORMATION
  Report Type: 
  Country: None (occurrence: None)
  Receive Date: 20120416
  Receipt Date: 20120406
  Transmission Date: 20120825
  Serious: Yes (Life-Threatening, Other)
  Sender: FDA-Public Use
  Company Number: US-BAYER-2011-106083

PATIENT
  Age: 20 Year
  Sex: Female
  Weight: 50.794 kg

DRUGS (4)
  1. YASMIN [Suspect]
     Indication: MENSTRUATION IRREGULAR
  2. DROSPIRENONE AND ETHINYL ESTRADIOL [Suspect]
     Indication: CONTRACEPTION
     Dosage: UNK
     Dates: start: 20080701, end: 20091201
  3. YASMIN [Suspect]
     Indication: CONTRACEPTION
     Dosage: UNK
     Dates: start: 20060101, end: 20080701
  4. DROSPIRENONE AND ETHINYL ESTRADIOL [Suspect]
     Indication: MENSTRUATION IRREGULAR

REACTIONS (8)
  - GENERAL PHYSICAL HEALTH DETERIORATION [None]
  - ANHEDONIA [None]
  - INJURY [None]
  - GALLBLADDER NON-FUNCTIONING [None]
  - CHOLECYSTITIS CHRONIC [None]
  - PAIN [None]
  - EMOTIONAL DISTRESS [None]
  - ORGAN FAILURE [None]
